FAERS Safety Report 11139520 (Version 1)
Quarter: 2015Q2

REPORT INFORMATION
  Report Type: Spontaneous
  Country: GB (occurrence: GB)
  Receive Date: 20150527
  Receipt Date: 20150527
  Transmission Date: 20150821
  Serious: Yes (Other)
  Sender: FDA-Public Use
  Company Number: GB-PFIZER INC-2015174315

PATIENT
  Sex: Female

DRUGS (1)
  1. LYRICA [Suspect]
     Active Substance: PREGABALIN
     Indication: ANXIETY
     Dosage: 300 MG, 1X/DAY
     Dates: end: 201505

REACTIONS (2)
  - Papilloedema [Unknown]
  - Visual impairment [Unknown]

NARRATIVE: CASE EVENT DATE: 201412
